FAERS Safety Report 11603072 (Version 1)
Quarter: 2015Q4

REPORT INFORMATION
  Report Type: Spontaneous
  Country: US (occurrence: None)
  Receive Date: 20151005
  Receipt Date: 20151005
  Transmission Date: 20160304
  Serious: No
  Sender: FDA-Public Use
  Company Number: None

PATIENT
  Age: 60 Year
  Sex: Male
  Weight: 78.02 kg

DRUGS (19)
  1. NITRO STAT [Concomitant]
  2. ISOSORBIDE. [Concomitant]
     Active Substance: ISOSORBIDE
  3. HYDROCODONE [Concomitant]
     Active Substance: HYDROCODONE
  4. ECOTRIN [Concomitant]
     Active Substance: ASPIRIN
  5. CRESTOR [Concomitant]
     Active Substance: ROSUVASTATIN CALCIUM
  6. BUSPIRONE [Concomitant]
     Active Substance: BUSPIRONE HYDROCHLORIDE
  7. LYRICA [Concomitant]
     Active Substance: PREGABALIN
  8. OXYCONTIN [Concomitant]
     Active Substance: OXYCODONE HYDROCHLORIDE
  9. METRONIDAZOLE TOPICAL LOTION [Concomitant]
  10. VITAMIN C [Concomitant]
     Active Substance: ASCORBIC ACID
  11. NEXIUM [Concomitant]
     Active Substance: ESOMEPRAZOLE MAGNESIUM
  12. BRILINTA [Concomitant]
     Active Substance: TICAGRELOR
  13. VITAMIN B6 [Concomitant]
     Active Substance: PYRIDOXINE HYDROCHLORIDE
  14. NEXIUM [Suspect]
     Active Substance: ESOMEPRAZOLE MAGNESIUM
     Indication: GASTROOESOPHAGEAL REFLUX DISEASE
     Route: 048
  15. ALPRAZOLAM. [Concomitant]
     Active Substance: ALPRAZOLAM
  16. METAXALONE. [Concomitant]
     Active Substance: METAXALONE
  17. NASONEX [Concomitant]
     Active Substance: MOMETASONE FUROATE
  18. ALFUZOSIN [Concomitant]
     Active Substance: ALFUZOSIN
  19. FUROSEMIDE. [Concomitant]
     Active Substance: FUROSEMIDE

REACTIONS (2)
  - Product substitution issue [None]
  - No therapeutic response [None]
